FAERS Safety Report 7044896-6 (Version None)
Quarter: 2010Q4

REPORT INFORMATION
  Report Type: 
  Country: None (occurrence: None)
  Receive Date: 20101014
  Receipt Date: 20101004
  Transmission Date: 20110411
  Serious: Yes (Hospitalization)
  Sender: FDA-Public Use
  Company Number: CO-WYE-H17991910

PATIENT
  Sex: Female

DRUGS (3)
  1. RAPAMUNE [Suspect]
     Indication: RENAL TRANSPLANT
     Route: 048
     Dates: start: 20100601
  2. MYCOPHENOLATE MOFETIL [Concomitant]
     Indication: RENAL TRANSPLANT
     Dates: start: 20100517, end: 20100701
  3. VALGANCICLOVIR HCL [Concomitant]
     Indication: RENAL TRANSPLANT
     Dates: start: 20100517, end: 20100701

REACTIONS (3)
  - LOSS OF CONSCIOUSNESS [None]
  - PNEUMONIA [None]
  - RENAL FAILURE [None]
